FAERS Safety Report 13990249 (Version 1)
Quarter: 2017Q3

REPORT INFORMATION
  Report Type: Report from Study
  Country: IE (occurrence: IE)
  Receive Date: 20170920
  Receipt Date: 20170920
  Transmission Date: 20171128
  Serious: Yes (Other)
  Sender: FDA-Public Use
  Company Number: IE-AMGEN-IRLSL2017141617

PATIENT
  Sex: Female

DRUGS (6)
  1. NEULASTA [Suspect]
     Active Substance: PEGFILGRASTIM
     Indication: PRODUCT USED FOR UNKNOWN INDICATION
     Dosage: 6 MG, Q2WK (POST CHEMOTHERAPY)
     Route: 058
  2. RANIDINE [Concomitant]
     Dosage: 150 MG, BID
     Route: 050
  3. ANXICALM [Concomitant]
     Dosage: 2 MG, AS NECESSARY
     Route: 050
  4. DEXAMETHASONE. [Concomitant]
     Active Substance: DEXAMETHASONE
     Dosage: 8 MG, PER CHEMO REGIM
     Route: 050
  5. IMODIUM [Concomitant]
     Active Substance: LOPERAMIDE HYDROCHLORIDE
     Dosage: 4 MG, TID
     Route: 050
  6. MAXOLON [Concomitant]
     Active Substance: METOCLOPRAMIDE HYDROCHLORIDE
     Dosage: 10 MG, TID
     Route: 050

REACTIONS (2)
  - Systemic lupus erythematosus [Not Recovered/Not Resolved]
  - Adverse reaction [Not Recovered/Not Resolved]
